FAERS Safety Report 24885531 (Version 1)
Quarter: 2025Q1

REPORT INFORMATION
  Report Type: Spontaneous
  Country: IN (occurrence: IN)
  Receive Date: 20250124
  Receipt Date: 20250124
  Transmission Date: 20250409
  Serious: Yes (Other)
  Sender: SANDOZ
  Company Number: IN-002147023-NVSC2024IN242587

PATIENT
  Sex: Female

DRUGS (2)
  1. MYFORTIC [Suspect]
     Active Substance: MYCOPHENOLATE SODIUM
     Indication: Renal transplant
     Dosage: 360 MG, BID
     Route: 048
  2. TACROLIMUS [Suspect]
     Active Substance: TACROLIMUS
     Indication: Renal transplant
     Dosage: 2 MG, BID
     Route: 048

REACTIONS (7)
  - Hypothyroidism [Unknown]
  - Limb discomfort [Unknown]
  - Dyspnoea [Unknown]
  - Constipation [Unknown]
  - Herpes virus infection [Unknown]
  - Pruritus [Unknown]
  - Off label use [Unknown]
